FAERS Safety Report 17137884 (Version 1)
Quarter: 2019Q4

REPORT INFORMATION
  Report Type: Other
  Country: US (occurrence: US)
  Receive Date: 20191211
  Receipt Date: 20191211
  Transmission Date: 20200122
  Serious: Yes (Other)
  Sender: FDA-Public Use
  Company Number: US-HEALTHCARE PHARMACEUTICALS LTD.-2077701

PATIENT
  Age: 53 Year
  Sex: Male

DRUGS (10)
  1. DEXAMETHASONE. [Suspect]
     Active Substance: DEXAMETHASONE
     Route: 065
  2. EMTRICITABINE [Concomitant]
     Active Substance: EMTRICITABINE
     Route: 065
  3. CYTARABINE. [Suspect]
     Active Substance: CYTARABINE
     Route: 065
  4. METHOTREXATE. [Suspect]
     Active Substance: METHOTREXATE
     Route: 065
  5. VINCRISTINE SULFATE. [Suspect]
     Active Substance: VINCRISTINE SULFATE
     Route: 065
  6. DOLUTEGRAVIR [Concomitant]
     Active Substance: DOLUTEGRAVIR
     Route: 065
  7. DOXORUBICIN HYDROCHLORIDE. [Suspect]
     Active Substance: DOXORUBICIN HYDROCHLORIDE
     Indication: ANAPLASTIC LARGE-CELL LYMPHOMA
     Route: 065
  8. DEXAMETHASONE. [Suspect]
     Active Substance: DEXAMETHASONE
     Route: 065
  9. CYCLOPHOSPHAMIDE. [Suspect]
     Active Substance: CYCLOPHOSPHAMIDE
     Route: 042
  10. TENOFOVIR ALAFENAMIDE [Concomitant]
     Active Substance: TENOFOVIR ALAFENAMIDE
     Route: 065

REACTIONS (4)
  - Oral candidiasis [Unknown]
  - Febrile neutropenia [Unknown]
  - Cytomegalovirus colitis [Unknown]
  - Pancytopenia [Unknown]
